FAERS Safety Report 5222376-8 (Version None)
Quarter: 2007Q1

REPORT INFORMATION
  Report Type: 
  Country: None (occurrence: None)
  Receive Date: 20070129
  Receipt Date: 20070118
  Transmission Date: 20070707
  Serious: Yes (Other)
  Sender: FDA-Public Use
  Company Number: 200616363EU

PATIENT

DRUGS (2)
  1. NICOTINE [Suspect]
     Route: 002
  2. BUPRENORPHINE HCL [Suspect]
     Route: 065

REACTIONS (1)
  - SUFFOCATION FEELING [None]
